FAERS Safety Report 21807748 (Version 5)
Quarter: 2023Q2

REPORT INFORMATION
  Report Type: Report from Study
  Country: US (occurrence: US)
  Receive Date: 20230103
  Receipt Date: 20230506
  Transmission Date: 20230721
  Serious: No
  Sender: FDA-Public Use
  Company Number: US-002147023-NVSC2022US302199

PATIENT
  Age: 62 Year
  Sex: Male

DRUGS (2)
  1. LEQVIO [Suspect]
     Active Substance: INCLISIRAN SODIUM
     Indication: Arteriosclerosis
     Dosage: UNK
     Route: 058
     Dates: start: 20221216
  2. LEQVIO [Suspect]
     Active Substance: INCLISIRAN SODIUM
     Dosage: 284 MG (INITIAL, 90 DAY, EVERY 6 MONTHS)
     Route: 058

REACTIONS (2)
  - Injection site pain [Unknown]
  - Inappropriate schedule of product administration [Unknown]

NARRATIVE: CASE EVENT DATE: 20221216
